FAERS Safety Report 8814597 (Version 1)
Quarter: 2012Q4

REPORT INFORMATION
  Report Type: 
  Country: FR (occurrence: FR)
  Receive Date: 20120928
  Receipt Date: 20120928
  Transmission Date: 20130627
  Serious: Yes (Life-Threatening, Hospitalization)
  Sender: FDA-Public Use
  Company Number: PHHY2012FR083927

PATIENT
  Age: 71 Year
  Sex: Female

DRUGS (6)
  1. VOLTARENE LP [Suspect]
     Indication: BACK PAIN
     Dosage: 1 DF, daily
     Route: 048
     Dates: start: 20120522, end: 20120527
  2. METFORMIN [Suspect]
     Indication: DIABETES MELLITUS
     Dosage: 3 g, daily
     Route: 048
     Dates: end: 20120527
  3. ATACAND [Interacting]
     Dosage: 8 mg, UNK
     Route: 048
     Dates: end: 20120527
  4. LASILIX [Interacting]
     Dosage: 60 mg,
     Route: 048
     Dates: end: 20120527
  5. LEVEMIR [Concomitant]
     Indication: DIABETES MELLITUS
  6. VICTOZA [Concomitant]
     Indication: DIABETES MELLITUS

REACTIONS (6)
  - Lactic acidosis [Recovered/Resolved]
  - Renal failure [Recovering/Resolving]
  - Anuria [Recovering/Resolving]
  - Oedema [Unknown]
  - Weight decreased [Unknown]
  - Cardiac failure [Unknown]
